FAERS Safety Report 17259986 (Version 1)
Quarter: 2020Q1

REPORT INFORMATION
  Report Type: Spontaneous
  Country: CM (occurrence: CM)
  Receive Date: 20200111
  Receipt Date: 20200111
  Transmission Date: 20200409
  Serious: Yes (Hospitalization, Other)
  Sender: FDA-Public Use
  Company Number: CM-009507513-2001CMR001899

PATIENT
  Age: 19 Year
  Sex: Male

DRUGS (1)
  1. MECTIZAN [Suspect]
     Active Substance: IVERMECTIN
     Dosage: UNK, 4 TABLET
     Route: 048
     Dates: start: 20191006

REACTIONS (7)
  - Coma [Recovered/Resolved]
  - Oedema peripheral [Recovered/Resolved]
  - Conjunctival haemorrhage [Recovered/Resolved]
  - Asthenia [Recovered/Resolved]
  - Pyrexia [Recovered/Resolved]
  - Pruritus [Recovered/Resolved]
  - Rash [Recovered/Resolved]

NARRATIVE: CASE EVENT DATE: 20191006
